FAERS Safety Report 9936898 (Version 1)
Quarter: 2014Q1

REPORT INFORMATION
  Report Type: Spontaneous
  Country: US (occurrence: None)
  Receive Date: 20140115
  Receipt Date: 20140115
  Transmission Date: 20141002
  Serious: Yes (Other)
  Sender: FDA-Public Use
  Company Number: 2013US002752

PATIENT
  Sex: Female

DRUGS (19)
  1. ICLUSIG [Suspect]
     Indication: CHRONIC MYELOID LEUKAEMIA
     Route: 048
  2. TACROLIMUS (TACROLIMUS) [Concomitant]
  3. PROMETHAZINE [Concomitant]
  4. FLUCONAZOLE (FLUCONAZOLE) [Concomitant]
  5. VIT D (ERGOCALCIFEROL) [Concomitant]
  6. AMOXICILLIN CLAVULANIC ACID [Concomitant]
  7. CLONAZEPAM (CLONAZEPAM) (CLONAZEPAM) [Concomitant]
  8. METHADONE (METHADONE) [Concomitant]
  9. LORAZEPAM (LORAZEPAM) [Concomitant]
  10. METOCLOPRAMIDE (METOCLOPRAMIDE) [Concomitant]
  11. FLUTICASONE (FLUTICASONE PROPIONATE) [Concomitant]
  12. GABAPENTIN (GABAPENTIN) [Concomitant]
  13. HYDROMORPHONE (HYDROMORPHONE) [Concomitant]
  14. DOC-Q-LACE (DOCUSATE SODIUM) [Concomitant]
  15. LIDODERM (LIDOCAINE) [Concomitant]
  16. BOSULIF [Concomitant]
  17. QUETIAPINE (QUETIAPINE) [Concomitant]
  18. FENOFIBRATE [Concomitant]
  19. CYMBALTA [Concomitant]

REACTIONS (3)
  - Drug ineffective [None]
  - Nausea [None]
  - Vomiting [None]
